FAERS Safety Report 7929043-8 (Version None)
Quarter: 2011Q4

REPORT INFORMATION
  Report Type: 
  Country: None (occurrence: None)
  Receive Date: 20111118
  Receipt Date: 20111109
  Transmission Date: 20120403
  Serious: Yes (Other)
  Sender: FDA-Public Use
  Company Number: US-ASTRAZENECA-2011SE56227

PATIENT
  Age: 58 Year
  Sex: Female

DRUGS (1)
  1. NEXIUM [Suspect]
     Route: 048

REACTIONS (8)
  - MALAISE [None]
  - ABDOMINAL DISCOMFORT [None]
  - SLEEP APNOEA SYNDROME [None]
  - DRUG DOSE OMISSION [None]
  - DEPRESSION [None]
  - GASTRIC DISORDER [None]
  - ADVERSE EVENT [None]
  - BREAST CANCER [None]
